FAERS Safety Report 13318052 (Version 6)
Quarter: 2017Q3

REPORT INFORMATION
  Report Type: Spontaneous
  Country: US (occurrence: US)
  Receive Date: 20170310
  Receipt Date: 20170919
  Transmission Date: 20171127
  Serious: No
  Sender: FDA-Public Use
  Company Number: US-PFIZER INC-2017105693

PATIENT
  Age: 41 Year
  Sex: Female
  Weight: 147 kg

DRUGS (12)
  1. SOMAVERT [Suspect]
     Active Substance: PEGVISOMANT
     Dosage: 30 MG, UNK (FOUR DAYS A WEEK)
     Route: 058
     Dates: start: 20170221
  2. SOMAVERT [Suspect]
     Active Substance: PEGVISOMANT
     Dosage: 60 MG, UNK (THREE DAYS A WEEK)
     Route: 058
     Dates: start: 20170221
  3. SOMAVERT [Suspect]
     Active Substance: PEGVISOMANT
     Dosage: 30 MG, UNK (TWICE WEEKLY/TWICE A WEEK)
     Dates: start: 20160818
  4. SOMAVERT [Suspect]
     Active Substance: PEGVISOMANT
     Dosage: UNK
     Dates: end: 201601
  5. SOMAVERT [Suspect]
     Active Substance: PEGVISOMANT
     Dosage: UNK UNK, DAILY
  6. SOMAVERT [Suspect]
     Active Substance: PEGVISOMANT
     Dosage: 30 MG, UNK (TWICE A WEEK)
     Dates: start: 201506
  7. SOMAVERT [Suspect]
     Active Substance: PEGVISOMANT
     Dosage: 20 MG, DAILY
  8. TYLENOL EXTRA STRENGTH [Concomitant]
     Active Substance: ACETAMINOPHEN
     Dosage: 500 MG, AS NEEDED (1-2 TABLETS BY MOUTH DAILY)
     Route: 048
  9. SOMAVERT [Suspect]
     Active Substance: PEGVISOMANT
     Indication: ACROMEGALY
     Dosage: 30 MG, DAILY (4 TIMES / 4 DAYS X A WEEK)
     Dates: start: 20131124
  10. SOMAVERT [Suspect]
     Active Substance: PEGVISOMANT
     Indication: GIGANTISM
     Dosage: 60 MG, DAILY (3 TIMES / 3 DAYS A WEEK)
     Dates: start: 20131124
  11. LEVOTHYROXINE. [Concomitant]
     Active Substance: LEVOTHYROXINE
     Dosage: 175 UG, 1X/DAY (1 TABLET BY MOUTH DAILY)
     Route: 048
  12. CLOBETASOL [Concomitant]
     Active Substance: CLOBETASOL
     Indication: ECZEMA
     Dosage: UNK UNK, AS NEEDED
     Route: 061

REACTIONS (5)
  - Product use issue [Unknown]
  - Injection site pain [Unknown]
  - Product quality issue [Unknown]
  - Wrong technique in product usage process [Unknown]
  - Intentional product misuse [Unknown]

NARRATIVE: CASE EVENT DATE: 20131124
